FAERS Safety Report 5158626-6 (Version None)
Quarter: 2006Q4

REPORT INFORMATION
  Report Type: 
  Country: None (occurrence: None)
  Receive Date: 20061128
  Receipt Date: 20061115
  Transmission Date: 20070319
  Serious: Yes (Life-Threatening, Hospitalization, Other)
  Sender: FDA-Public Use
  Company Number: US-ELI_LILLY_AND_COMPANY-US200611003188

PATIENT
  Age: 43 Year
  Sex: Female

DRUGS (1)
  1. HUMATROPE [Suspect]
     Indication: HYPOPITUITARISM
     Dosage: 6 MG, UNK
     Dates: start: 19980101

REACTIONS (15)
  - ARNOLD-CHIARI MALFORMATION [None]
  - CENTRAL VENOUS CATHETERISATION [None]
  - CONTUSION [None]
  - GASTROINTESTINAL TUBE INSERTION [None]
  - INTUBATION [None]
  - MENINGITIS [None]
  - PHARYNGEAL OEDEMA [None]
  - POST PROCEDURAL COMPLICATION [None]
  - POST PROCEDURAL HAEMATOMA [None]
  - POST PROCEDURAL HAEMORRHAGE [None]
  - SCAR [None]
  - STAPHYLOCOCCAL INFECTION [None]
  - VENA CAVA FILTER INSERTION [None]
  - VIRAL INFECTION [None]
  - VISUAL FIELD DEFECT [None]
